FAERS Safety Report 9606827 (Version 1)
Quarter: 2013Q4

REPORT INFORMATION
  Report Type: Spontaneous
  Country: US (occurrence: US)
  Receive Date: 20131008
  Receipt Date: 20131008
  Transmission Date: 20140711
  Serious: No
  Sender: FDA-Public Use
  Company Number: US-AMGEN-USASP2013066879

PATIENT
  Age: 56 Year
  Sex: Female

DRUGS (3)
  1. PROLIA [Suspect]
     Indication: OSTEOPOROSIS POSTMENOPAUSAL
     Dosage: 60 MG, Q6MO
     Route: 065
     Dates: start: 20130410
  2. CALCIUM [Concomitant]
  3. VITAMINS                           /00067501/ [Concomitant]

REACTIONS (11)
  - Dermatitis contact [Recovered/Resolved]
  - Ankle impingement [Recovered/Resolved]
  - Blister [Unknown]
  - Nasopharyngitis [Unknown]
  - Diarrhoea [Unknown]
  - Nausea [Unknown]
  - Cold sweat [Unknown]
  - Cough [Unknown]
  - Sneezing [Unknown]
  - Myalgia [Recovered/Resolved]
  - Urticaria [Recovered/Resolved]
